FAERS Safety Report 23653937 (Version 1)
Quarter: 2024Q1

REPORT INFORMATION
  Report Type: Spontaneous
  Country: US (occurrence: US)
  Receive Date: 20240320
  Receipt Date: 20240320
  Transmission Date: 20240410
  Serious: No
  Sender: FDA-Public Use
  Company Number: US-AMGEN-USASP2024053357

PATIENT
  Sex: Female

DRUGS (1)
  1. AMJEVITA [Suspect]
     Active Substance: ADALIMUMAB-ATTO
     Indication: Rheumatoid arthritis
     Dosage: UNK
     Route: 065

REACTIONS (6)
  - Decreased immune responsiveness [Unknown]
  - Nausea [Unknown]
  - Diarrhoea [Unknown]
  - COVID-19 [Unknown]
  - Mycoplasma infection [Unknown]
  - Feeling abnormal [Unknown]
